FAERS Safety Report 9343327 (Version 2)
Quarter: 2013Q3

REPORT INFORMATION
  Report Type: Report from Study
  Country: JP (occurrence: JP)
  Receive Date: 20130612
  Receipt Date: 20130806
  Transmission Date: 20140515
  Serious: Yes (Hospitalization)
  Sender: FDA-Public Use
  Company Number: JP-ROCHE-1235348

PATIENT
  Age: 88 Year
  Sex: Female

DRUGS (11)
  1. OMALIZUMAB [Suspect]
     Indication: ASTHMA
     Route: 058
     Dates: start: 20121130, end: 20121130
  2. RINDERON [Suspect]
     Indication: PRODUCT USED FOR UNKNOWN INDICATION
     Route: 042
     Dates: end: 20130104
  3. HOKUNALIN [Concomitant]
     Route: 065
     Dates: start: 20120530
  4. KIPRES [Concomitant]
     Route: 065
     Dates: start: 20120530
  5. LASIX [Concomitant]
     Route: 065
     Dates: start: 20130306
  6. WARFARIN [Concomitant]
     Route: 065
     Dates: start: 20110617
  7. TAKEPRON [Concomitant]
     Route: 065
     Dates: start: 20090406
  8. DEPAS [Concomitant]
     Route: 065
     Dates: start: 20090309
  9. BENET [Concomitant]
     Route: 065
     Dates: start: 20120306
  10. FRANDOL S [Concomitant]
     Route: 065
     Dates: start: 20100526
  11. LIPITOR [Concomitant]
     Route: 065
     Dates: start: 20100917

REACTIONS (2)
  - Asthma [Recovering/Resolving]
  - Pleurisy [Recovering/Resolving]
